FAERS Safety Report 5514845-8 (Version None)
Quarter: 2007Q4

REPORT INFORMATION
  Report Type: 
  Country: None (occurrence: None)
  Receive Date: 20071113
  Receipt Date: 20071102
  Transmission Date: 20080405
  Serious: Yes (Death, Disabling)
  Sender: FDA-Public Use
  Company Number: JP-ELI_LILLY_AND_COMPANY-JP200710006524

PATIENT
  Age: 78 Year
  Sex: Male

DRUGS (2)
  1. HUMULIN 70/30 [Suspect]
     Dosage: 8 IU, DAILY (1/D)
     Route: 058
     Dates: start: 20041007, end: 20041106
  2. HUMULIN R [Suspect]
     Dosage: 6 IU, AS NEEDED
     Route: 058

REACTIONS (2)
  - HYPOGLYCAEMIC COMA [None]
  - PNEUMONIA [None]
